FAERS Safety Report 16155130 (Version 1)
Quarter: 2019Q2

REPORT INFORMATION
  Report Type: Spontaneous
  Country: FR (occurrence: FR)
  Receive Date: 20190403
  Receipt Date: 20190403
  Transmission Date: 20190711
  Serious: Yes (Other)
  Sender: FDA-Public Use
  Company Number: FR-SEATTLE GENETICS-2019SGN00943

PATIENT
  Age: 44 Year
  Sex: Male

DRUGS (1)
  1. ADCETRIS [Suspect]
     Active Substance: BRENTUXIMAB VEDOTIN
     Indication: PERIPHERAL T-CELL LYMPHOMA UNSPECIFIED
     Dosage: UNK
     Route: 065

REACTIONS (5)
  - Cytomegalovirus infection [Unknown]
  - Septic shock [Unknown]
  - Off label use [Unknown]
  - Nephropathy toxic [Unknown]
  - Cytomegalovirus chorioretinitis [Unknown]
